FAERS Safety Report 18441343 (Version 1)
Quarter: 2020Q4

REPORT INFORMATION
  Report Type: Report from Study
  Country: GB (occurrence: GB)
  Receive Date: 20201029
  Receipt Date: 20201029
  Transmission Date: 20210114
  Serious: Yes (Other)
  Sender: FDA-Public Use
  Company Number: GB-JNJFOC-20200810503

PATIENT
  Age: 4 Decade
  Sex: Male

DRUGS (2)
  1. STELARA [Suspect]
     Active Substance: USTEKINUMAB
     Indication: ANKYLOSING SPONDYLITIS
     Dosage: 45MG/0.5ML
     Route: 058
     Dates: start: 201608
  2. STELARA [Suspect]
     Active Substance: USTEKINUMAB

REACTIONS (5)
  - Product dose omission issue [Unknown]
  - Wheelchair user [Unknown]
  - Product use in unapproved indication [Unknown]
  - Tremor [Unknown]
  - Off label use [Unknown]

NARRATIVE: CASE EVENT DATE: 201608
